FAERS Safety Report 5915094-1 (Version None)
Quarter: 2008Q4

REPORT INFORMATION
  Report Type: 
  Country: None (occurrence: None)
  Receive Date: 20081010
  Receipt Date: 20081003
  Transmission Date: 20090506
  Serious: Yes (Hospitalization)
  Sender: FDA-Public Use
  Company Number: A0751406A

PATIENT
  Age: 46 Year
  Sex: Male
  Weight: 71.4 kg

DRUGS (1)
  1. AVANDIA [Suspect]
     Dosage: 4MG TWICE PER DAY
     Route: 065
     Dates: start: 20051015, end: 20070906

REACTIONS (1)
  - MYOCARDIAL INFARCTION [None]
